FAERS Safety Report 20580737 (Version 2)
Quarter: 2022Q2

REPORT INFORMATION
  Report Type: Report from Study
  Country: FR (occurrence: FR)
  Receive Date: 20220311
  Receipt Date: 20220510
  Transmission Date: 20220721
  Serious: Yes (Hospitalization, Other)
  Sender: FDA-Public Use
  Company Number: FR-BRISTOL-MYERS SQUIBB COMPANY-BMS-2022-032424

PATIENT
  Age: 78 Year
  Sex: Male

DRUGS (4)
  1. NIVOLUMAB [Suspect]
     Active Substance: NIVOLUMAB
     Indication: Renal cell carcinoma
     Dosage: UNK
     Route: 065
  2. NIVOLUMAB [Suspect]
     Active Substance: NIVOLUMAB
  3. ZITHROMAX [Concomitant]
     Active Substance: AZITHROMYCIN DIHYDRATE
     Indication: Product used for unknown indication
     Route: 065
  4. PYRIMETHAMINE [Concomitant]
     Active Substance: PYRIMETHAMINE
     Indication: Product used for unknown indication
     Route: 065

REACTIONS (12)
  - Discomfort [Recovered/Resolved]
  - Keratouveitis [Recovered/Resolved]
  - Diarrhoea [Recovered/Resolved]
  - Uveitis [Recovered/Resolved]
  - Eye disorder [Recovered/Resolved]
  - Hyperglycaemia [Recovered/Resolved]
  - Presyncope [Recovered/Resolved]
  - Diabetic metabolic decompensation [Recovered/Resolved]
  - Dehydration [Recovered/Resolved]
  - Condition aggravated [Recovered/Resolved]
  - Loss of consciousness [Recovered/Resolved]
  - Off label use [Unknown]

NARRATIVE: CASE EVENT DATE: 20211119
